FAERS Safety Report 25255000 (Version 1)
Quarter: 2025Q2

REPORT INFORMATION
  Report Type: Spontaneous
  Country: US (occurrence: US)
  Receive Date: 20250430
  Receipt Date: 20250430
  Transmission Date: 20250717
  Serious: No
  Sender: Kenvue
  Company Number: US-KENVUE-20250402017

PATIENT
  Age: 54 Year
  Sex: Female

DRUGS (1)
  1. WOMENS ROGAINE UNSCENTED [Suspect]
     Active Substance: MINOXIDIL
     Indication: Alopecia
     Dosage: 3 OR 4 LINES, ONCE A DAY
     Route: 061
     Dates: start: 202409, end: 2024

REACTIONS (3)
  - Application site erythema [Recovering/Resolving]
  - Application site irritation [Recovering/Resolving]
  - Incorrect dose administered [Unknown]

NARRATIVE: CASE EVENT DATE: 20240901
